FAERS Safety Report 4971595-4 (Version None)
Quarter: 2006Q2

REPORT INFORMATION
  Report Type: 
  Country: None (occurrence: None)
  Receive Date: 20060406
  Receipt Date: 20060321
  Transmission Date: 20061013
  Serious: Yes (Hospitalization)
  Sender: FDA-Public Use
  Company Number: FR200603005702

PATIENT
  Age: 83 Year
  Sex: Male

DRUGS (8)
  1. ZYPREXA [Suspect]
     Indication: PSYCHOTIC DISORDER
     Dosage: ORAL
     Route: 048
     Dates: start: 20040101, end: 20051015
  2. TRIATEC /FRA/ (RAMIPRIL) [Concomitant]
  3. FONZYLANE (BUFLOMEDIL HYDROCHLORIDE) [Concomitant]
  4. ATENOLOL [Concomitant]
  5. ZOPICLONE [Concomitant]
  6. PRAVASTATIN [Concomitant]
  7. ALLOPURINOL [Concomitant]
  8. URBANYL /FRA/ (CLOBAZAM) [Concomitant]

REACTIONS (13)
  - AFFECTIVE DISORDER [None]
  - AGITATION [None]
  - ANXIETY [None]
  - BLOOD CHLORIDE DECREASED [None]
  - CONFUSIONAL STATE [None]
  - FALL [None]
  - HYPONATRAEMIA [None]
  - HYPOURICAEMIA [None]
  - ISCHAEMIC CARDIOMYOPATHY [None]
  - MEMORY IMPAIRMENT [None]
  - MYOCARDIAL ISCHAEMIA [None]
  - PROTEIN TOTAL DECREASED [None]
  - RENAL FAILURE [None]
